FAERS Safety Report 9904522 (Version 2)
Quarter: 2014Q2

REPORT INFORMATION
  Report Type: Report from Study
  Country: JP (occurrence: JP)
  Receive Date: 20140218
  Receipt Date: 20140509
  Transmission Date: 20141212
  Serious: Yes (Other)
  Sender: FDA-Public Use
  Company Number: JP-JNJFOC-20140208082

PATIENT
  Age: 81 Year
  Sex: Male
  Weight: 59 kg

DRUGS (49)
  1. ITRIZOLE [Suspect]
     Indication: ANTIFUNGAL PROPHYLAXIS
     Route: 048
     Dates: start: 20130417, end: 20130515
  2. ITRIZOLE [Suspect]
     Indication: ANTIFUNGAL PROPHYLAXIS
     Route: 048
     Dates: start: 20130403, end: 20130407
  3. FLUCONAZOLE [Suspect]
     Indication: PROPHYLAXIS
     Route: 048
     Dates: start: 20130516
  4. BORTEZOMIB [Suspect]
     Indication: PLASMA CELL MYELOMA
     Route: 065
     Dates: start: 20130606, end: 20130606
  5. BORTEZOMIB [Suspect]
     Indication: PLASMA CELL MYELOMA
     Route: 065
     Dates: start: 20130423, end: 20130423
  6. BORTEZOMIB [Suspect]
     Indication: PLASMA CELL MYELOMA
     Route: 065
     Dates: start: 20130416, end: 20130416
  7. BORTEZOMIB [Suspect]
     Indication: PLASMA CELL MYELOMA
     Route: 065
     Dates: start: 20130403, end: 20130403
  8. BORTEZOMIB [Suspect]
     Indication: PLASMA CELL MYELOMA
     Route: 065
     Dates: start: 20130430, end: 20130430
  9. ALKERAN [Suspect]
     Indication: PLASMA CELL MYELOMA
     Route: 048
     Dates: start: 20130606, end: 20130609
  10. ALKERAN [Suspect]
     Indication: PLASMA CELL MYELOMA
     Route: 048
     Dates: start: 20130403, end: 20130406
  11. ACETAMINOPHINE [Concomitant]
     Indication: BRONCHITIS
     Route: 048
     Dates: end: 20130411
  12. PARIET [Concomitant]
     Indication: GASTROOESOPHAGEAL REFLUX DISEASE
     Route: 048
  13. JANUVIA [Concomitant]
     Indication: DIABETES MELLITUS
     Route: 048
  14. DIART [Concomitant]
     Indication: CARDIAC FAILURE CONGESTIVE
     Route: 048
     Dates: end: 20130529
  15. LANIRAPID [Concomitant]
     Indication: CARDIAC FAILURE CONGESTIVE
     Route: 048
     Dates: end: 20130515
  16. BAYASPIRIN [Concomitant]
     Indication: PROPHYLAXIS
     Route: 048
  17. PRAVASTATIN SODIUM [Concomitant]
     Indication: HYPERLIPIDAEMIA
     Route: 048
  18. WARFARIN POTASSIUM [Concomitant]
     Indication: PROPHYLAXIS
     Route: 048
     Dates: end: 20130527
  19. NORVASC [Concomitant]
     Indication: HYPERTENSION
     Route: 048
     Dates: start: 20130403
  20. KYTRIL [Concomitant]
     Indication: PROPHYLAXIS
     Route: 048
     Dates: start: 20130606, end: 20130609
  21. KYTRIL [Concomitant]
     Indication: PROPHYLAXIS
     Route: 048
     Dates: start: 20130403, end: 20130406
  22. PREDONINE [Concomitant]
     Indication: CARDIAC FAILURE CONGESTIVE
     Route: 048
     Dates: start: 20130416, end: 20130417
  23. PREDONINE [Concomitant]
     Indication: CARDIAC FAILURE CONGESTIVE
     Route: 048
     Dates: start: 20130606, end: 20130609
  24. PREDONINE [Concomitant]
     Indication: CARDIAC FAILURE CONGESTIVE
     Route: 048
     Dates: start: 20130403, end: 20130406
  25. PREDONINE [Concomitant]
     Indication: CARDIAC FAILURE CONGESTIVE
     Route: 048
     Dates: start: 20130423, end: 20130424
  26. PREDONINE [Concomitant]
     Indication: CARDIAC FAILURE CONGESTIVE
     Route: 048
     Dates: start: 20130430, end: 20130501
  27. LACTULOSE [Concomitant]
     Indication: CONSTIPATION
     Route: 048
     Dates: start: 20130404, end: 20130425
  28. LACTULOSE [Concomitant]
     Indication: CONSTIPATION
     Route: 048
     Dates: start: 20130607, end: 20130623
  29. SULFAMETHOXAZOLE TRIMETHOPRIM [Concomitant]
     Indication: PROPHYLAXIS
     Route: 048
     Dates: start: 20130416
  30. SULFAMETHOXAZOLE TRIMETHOPRIM [Concomitant]
     Indication: PROPHYLAXIS
     Route: 048
     Dates: start: 20130408, end: 20130415
  31. MYSLEE [Concomitant]
     Indication: INSOMNIA
     Route: 048
     Dates: start: 20130408, end: 20130408
  32. ACICLOVIR [Concomitant]
     Indication: PROPHYLAXIS
     Route: 048
     Dates: start: 20130416, end: 20130515
  33. MEYLON [Concomitant]
     Indication: PROPHYLAXIS
     Route: 042
     Dates: start: 20130403, end: 20130408
  34. ZOMETA [Concomitant]
     Indication: PLASMA CELL MYELOMA
     Route: 041
     Dates: start: 20130501, end: 20130501
  35. MAXIPIME [Concomitant]
     Indication: BRONCHITIS CHRONIC
     Route: 042
     Dates: start: 20130408, end: 20130414
  36. FUNGUARD [Concomitant]
     Indication: BRONCHITIS CHRONIC
     Route: 041
     Dates: start: 20130408, end: 20130416
  37. LASIX [Concomitant]
     Indication: HYPERTENSION
     Route: 048
     Dates: start: 20130309, end: 20130513
  38. CEFZON [Concomitant]
     Indication: BRONCHITIS CHRONIC
     Route: 048
     Dates: start: 20130511, end: 20130513
  39. SPIRONOLACTONE [Concomitant]
     Indication: CARDIAC FAILURE CONGESTIVE
     Route: 048
     Dates: start: 20130515, end: 20130516
  40. SPIRONOLACTONE [Concomitant]
     Indication: CARDIAC FAILURE CONGESTIVE
     Route: 048
     Dates: start: 20130517
  41. SPIRONOLACTONE [Concomitant]
     Indication: HYPERTENSION
     Route: 048
     Dates: start: 20130515, end: 20130516
  42. SPIRONOLACTONE [Concomitant]
     Indication: HYPERTENSION
     Route: 048
     Dates: start: 20130517
  43. TOLVAPTAN [Concomitant]
     Indication: CARDIAC FAILURE CONGESTIVE
     Route: 048
     Dates: start: 20130515, end: 20130516
  44. VALIXA [Concomitant]
     Indication: PLASMA CELL MYELOMA
     Route: 048
     Dates: start: 20130515, end: 20130521
  45. PLAVIX [Concomitant]
     Indication: PROPHYLAXIS
     Route: 048
     Dates: start: 20130525
  46. NORADRENALIN [Concomitant]
     Indication: PROPHYLAXIS
     Route: 065
     Dates: start: 20130528, end: 20130528
  47. PRIMPERAN [Concomitant]
     Indication: PROPHYLAXIS
     Route: 065
     Dates: start: 20130528, end: 20130528
  48. LIASOPHIN [Concomitant]
     Indication: BRONCHITIS CHRONIC
     Route: 042
     Dates: start: 20130515, end: 20130521
  49. ATROPINE [Concomitant]
     Indication: PROPHYLAXIS
     Route: 065
     Dates: start: 20130528, end: 20130528

REACTIONS (5)
  - Cardiac failure congestive [Recovered/Resolved]
  - Bronchitis [Recovered/Resolved]
  - Hypoxia [Recovered/Resolved]
  - Pyrexia [Unknown]
  - Decreased appetite [Recovered/Resolved]
